FAERS Safety Report 22208229 (Version 4)
Quarter: 2023Q2

REPORT INFORMATION
  Report Type: Spontaneous
  Country: US (occurrence: US)
  Receive Date: 20230413
  Receipt Date: 20230619
  Transmission Date: 20230721
  Serious: No
  Sender: FDA-Public Use
  Company Number: US-GLAXOSMITHKLINE-US2023AMR049562

PATIENT
  Sex: Female

DRUGS (2)
  1. ZEJULA [Suspect]
     Active Substance: NIRAPARIB
     Indication: Metastases to ovary
     Dosage: 1 DF, QD (CAPSULE)
  2. ZEJULA [Suspect]
     Active Substance: NIRAPARIB
     Indication: Malignant peritoneal neoplasm

REACTIONS (10)
  - Blood pressure increased [Unknown]
  - Red blood cell count decreased [Unknown]
  - White blood cell count decreased [Unknown]
  - Fatigue [Unknown]
  - Platelet count decreased [Unknown]
  - Dizziness [Unknown]
  - Insomnia [Unknown]
  - Off label use [Unknown]
  - Product dose omission issue [Unknown]
  - Incorrect dose administered [Unknown]
